FAERS Safety Report 4918470-9 (Version None)
Quarter: 2006Q1

REPORT INFORMATION
  Report Type: 
  Country: None (occurrence: None)
  Receive Date: 20060217
  Receipt Date: 20060217
  Transmission Date: 20060701
  Serious: Yes (Hospitalization, Other)
  Sender: FDA-Public Use
  Company Number: None

PATIENT
  Sex: Male
  Weight: 83.2 kg

DRUGS (2)
  1. CYCLOPHOSPHAMIDE [Suspect]
     Indication: CHRONIC LYMPHOCYTIC LEUKAEMIA
     Dosage: 600 MG
     Dates: start: 20060110, end: 20060110
  2. PENTOSTATIN [Suspect]
     Dosage: 1 MG
     Dates: start: 20060110, end: 20060110

REACTIONS (8)
  - ASPERGILLOSIS [None]
  - COMPUTERISED TOMOGRAM ABNORMAL [None]
  - EYE HAEMORRHAGE [None]
  - FEBRILE NEUTROPENIA [None]
  - HAEMOGLOBIN DECREASED [None]
  - LYMPHADENOPATHY [None]
  - PLATELET COUNT DECREASED [None]
  - PNEUMONIA FUNGAL [None]
